FAERS Safety Report 17817332 (Version 1)
Quarter: 2020Q2

REPORT INFORMATION
  Report Type: Spontaneous
  Country: US (occurrence: US)
  Receive Date: 20200522
  Receipt Date: 20200522
  Transmission Date: 20200714
  Serious: No
  Sender: FDA-Public Use
  Company Number: US-BAYER-2020-082708

PATIENT

DRUGS (2)
  1. ALEVE [Suspect]
     Active Substance: NAPROXEN SODIUM
     Indication: POST POLIO SYNDROME
     Dosage: UNK UNK, QD
     Dates: start: 202002
  2. VITAMINS NOS [Concomitant]
     Active Substance: VITAMINS

REACTIONS (3)
  - Off label use [None]
  - Drug effective for unapproved indication [None]
  - Incorrect product administration duration [None]

NARRATIVE: CASE EVENT DATE: 202002
